FAERS Safety Report 4309006-4 (Version None)
Quarter: 2004Q1

REPORT INFORMATION
  Report Type: 
  Country: None (occurrence: None)
  Receive Date: 20040227
  Receipt Date: 20040216
  Transmission Date: 20041129
  Serious: Yes (Life-Threatening)
  Sender: FDA-Public Use
  Company Number: 2004200271FR

PATIENT
  Age: 74 Year
  Sex: Male

DRUGS (4)
  1. DOXORUBICIN HCL [Suspect]
     Indication: HODGKIN'S DISEASE NODULAR SCLEROSIS STAGE UNSPECIFIED
     Dosage: 394 MG, TOTAL DOSE OF 8 CYCLES, IV
     Route: 042
     Dates: start: 20030515, end: 20031027
  2. BLEOMYCIN [Suspect]
     Indication: HODGKIN'S DISEASE NODULAR SCLEROSIS STAGE UNSPECIFIED
     Dosage: 153 MG, (TODAL DOSE), 8 CYCLES, IV
     Route: 042
     Dates: start: 20030515, end: 20031027
  3. DACARBAZINE [Suspect]
     Indication: HODGKIN'S DISEASE NODULAR SCLEROSIS STAGE UNSPECIFIED
     Dosage: 5 G, (TODAL DOSE), 8 CYCLES, IV
     Route: 042
     Dates: start: 20030515, end: 20031027
  4. VELBAN [Suspect]
     Indication: HODGKIN'S DISEASE NODULAR SCLEROSIS STAGE UNSPECIFIED
     Dosage: 89 MG, (TOTAL DOSE), 8 CYCLES, IV
     Route: 042
     Dates: start: 20030515, end: 20031027

REACTIONS (2)
  - DYSPNOEA EXERTIONAL [None]
  - PULMONARY FIBROSIS [None]
